FAERS Safety Report 8097753-0 (Version None)
Quarter: 2012Q1

REPORT INFORMATION
  Report Type: 
  Country: None (occurrence: None)
  Receive Date: 20120128
  Receipt Date: 20110713
  Transmission Date: 20120608
  Serious: No
  Sender: FDA-Public Use
  Company Number: US-ABBOTT-11P-163-0839879-00

PATIENT
  Sex: Female
  Weight: 74.91 kg

DRUGS (12)
  1. PREDNISONE TAB [Suspect]
     Route: 048
     Dates: start: 20110517, end: 20110522
  2. AMLODIPINE [Suspect]
     Indication: HYPERTENSION
     Route: 048
     Dates: start: 20110622
  3. PLAQUENIL [Concomitant]
     Indication: RHEUMATOID ARTHRITIS
     Dosage: 200MG TABLET
     Route: 048
  4. OMEPRAZOLE [Concomitant]
     Indication: GASTROOESOPHAGEAL REFLUX DISEASE
     Dosage: AS NEEDED
     Dates: start: 20101201
  5. HUMIRA [Suspect]
     Indication: RHEUMATOID ARTHRITIS
     Route: 058
     Dates: start: 20110517
  6. PREDNISONE TAB [Suspect]
     Route: 048
     Dates: start: 20110606, end: 20110612
  7. PREDNISONE TAB [Suspect]
     Route: 048
     Dates: start: 20110613
  8. PREDNISONE TAB [Suspect]
     Route: 048
     Dates: start: 20110530, end: 20110605
  9. HYDROCODONE BITARTRATE AND ACETAMINOPHEN [Concomitant]
     Indication: ARTHRALGIA
     Dosage: 5/500MG TABLETS TWICE A DAY AS NEEDED FOR PAIN
     Route: 048
  10. PREDNISONE TAB [Suspect]
     Indication: RHEUMATOID ARTHRITIS
     Route: 048
     Dates: start: 20100101, end: 20110516
  11. PREDNISONE TAB [Suspect]
     Route: 048
     Dates: start: 20110523, end: 20110529
  12. AMLODIPINE [Suspect]
     Route: 048
     Dates: end: 20110621

REACTIONS (6)
  - CHEST PAIN [None]
  - DIZZINESS [None]
  - GASTROOESOPHAGEAL REFLUX DISEASE [None]
  - BLOOD PRESSURE INCREASED [None]
  - DYSPNOEA [None]
  - HYPOTENSION [None]
